FAERS Safety Report 17050061 (Version 2)
Quarter: 2020Q1

REPORT INFORMATION
  Report Type: Spontaneous
  Country: JP (occurrence: JP)
  Receive Date: 20191119
  Receipt Date: 20200203
  Transmission Date: 20200409
  Serious: No
  Sender: FDA-Public Use
  Company Number: JP-EISAI MEDICAL RESEARCH-EC-2019-065579

PATIENT
  Age: 76 Year
  Sex: Male

DRUGS (3)
  1. ARICEPT [Suspect]
     Active Substance: DONEPEZIL HYDROCHLORIDE
     Route: 048
     Dates: start: 20190625, end: 20190729
  2. HALFDIGOXIN [Concomitant]
     Active Substance: DIGOXIN
     Indication: PRODUCT USED FOR UNKNOWN INDICATION
     Dosage: DOSE AND FREQUENCY UNKNOWN
     Route: 065
  3. ARICEPT [Suspect]
     Active Substance: DONEPEZIL HYDROCHLORIDE
     Indication: DEMENTIA WITH LEWY BODIES
     Route: 048
     Dates: start: 20190611, end: 20190624

REACTIONS (2)
  - Electrocardiogram QT prolonged [Not Recovered/Not Resolved]
  - Bradycardia [Recovering/Resolving]

NARRATIVE: CASE EVENT DATE: 2019
